FAERS Safety Report 10387180 (Version 1)
Quarter: 2014Q3

REPORT INFORMATION
  Report Type: Spontaneous
  Country: US (occurrence: None)
  Receive Date: 20140814
  Receipt Date: 20140814
  Transmission Date: 20150326
  Serious: Yes (Disabling, Other)
  Sender: FDA-Public Use
  Company Number: None

PATIENT
  Age: 63 Year
  Sex: Female
  Weight: 115 kg

DRUGS (10)
  1. LORTAB [Concomitant]
     Active Substance: ACETAMINOPHEN\HYDROCODONE BITARTRATE
  2. MORPHINE [Concomitant]
     Active Substance: MORPHINE
  3. VIT D. [Concomitant]
  4. HUMIRA [Suspect]
     Active Substance: ADALIMUMAB
     Indication: ARTHRITIS
     Dosage: 2 INJECTION A MONTH?2 YEARS?1YEAR
  5. AMITIZA [Concomitant]
     Active Substance: LUBIPROSTONE
  6. NEXAM [Concomitant]
  7. ZOPIDEM TAR [Concomitant]
  8. ALPRAOLANA [Concomitant]
  9. MEDROL [Concomitant]
     Active Substance: METHYLPREDNISOLONE
  10. POTASSIUM [Concomitant]
     Active Substance: POTASSIUM

REACTIONS (3)
  - Weight decreased [None]
  - Gingivitis [None]
  - Dental caries [None]
